FAERS Safety Report 20919016 (Version 1)
Quarter: 2022Q2

REPORT INFORMATION
  Report Type: Other
  Country: US (occurrence: None)
  Receive Date: 20220606
  Receipt Date: 20220606
  Transmission Date: 20220721
  Serious: Yes (Hospitalization)
  Sender: FDA-Public Use
  Company Number: US-ROCHE-3106825

PATIENT
  Age: 43 Year
  Sex: Female
  Weight: 58.566 kg

DRUGS (2)
  1. OCREVUS [Suspect]
     Active Substance: OCRELIZUMAB
     Indication: Relapsing-remitting multiple sclerosis
     Dosage: NO
     Route: 042
     Dates: start: 20210830, end: 20210914
  2. OCREVUS [Suspect]
     Active Substance: OCRELIZUMAB
     Dosage: PATIENT REQUESTED DOCTOR TO CHANGE FREQUENCY TO 1 TIME EVERY 5 MONTHS, PENDING APPROVAL.
     Route: 042
     Dates: start: 202203

REACTIONS (3)
  - Chest pain [Not Recovered/Not Resolved]
  - COVID-19 [Recovered/Resolved]
  - Infusion related reaction [Unknown]

NARRATIVE: CASE EVENT DATE: 20211111
